FAERS Safety Report 5745046-6 (Version None)
Quarter: 2008Q2

REPORT INFORMATION
  Report Type: 
  Country: None (occurrence: None)
  Receive Date: 20080521
  Receipt Date: 20080509
  Transmission Date: 20081010
  Serious: Yes (Other)
  Sender: FDA-Public Use
  Company Number: DE-ROCHE-562429

PATIENT
  Sex: Female
  Weight: 89 kg

DRUGS (8)
  1. BONIVA [Suspect]
     Indication: OSTEOPOROSIS
     Route: 065
     Dates: start: 20070503
  2. DURASOPTIN [Suspect]
     Indication: DRUG USE FOR UNKNOWN INDICATION
     Dosage: DRUG NAME: DURASOPIN
     Route: 065
  3. MARCUMAR [Concomitant]
     Dosage: DOSAGE: INR DEPENDENT
  4. DIGIMERCK MINOR [Concomitant]
  5. SPIRO [Concomitant]
     Dosage: DRUG NAME: SPIRO D-TABLETTEN
  6. FUROSEMIDE [Concomitant]
  7. THYRONAJOD [Concomitant]
  8. THYRONAJOD [Concomitant]

REACTIONS (10)
  - GASTRITIS [None]
  - HEPATIC CIRRHOSIS [None]
  - LEUKOPENIA [None]
  - MITRAL VALVE CALCIFICATION [None]
  - MITRAL VALVE DISEASE MIXED [None]
  - MITRAL VALVE STENOSIS [None]
  - PULMONARY HYPERTENSION [None]
  - STRESS [None]
  - THROMBOCYTOPENIA [None]
  - TRICUSPID VALVE INCOMPETENCE [None]
